FAERS Safety Report 4503083-3 (Version None)
Quarter: 2004Q4

REPORT INFORMATION
  Report Type: 
  Country: None (occurrence: None)
  Receive Date: 20041112
  Receipt Date: 20041104
  Transmission Date: 20050328
  Serious: Yes (Death)
  Sender: FDA-Public Use
  Company Number: 2004SE06147

PATIENT
  Age: 19 Year
  Sex: Male

DRUGS (6)
  1. SEROQUEL [Suspect]
     Dosage: 500 MG DAILY PO
     Route: 048
  2. SUBUTEX [Suspect]
  3. RIVOTRIL [Concomitant]
  4. TRUXAL [Concomitant]
  5. BURONIL [Concomitant]
  6. IMOVANE [Concomitant]

REACTIONS (1)
  - DEATH [None]
